FAERS Safety Report 8827703 (Version 1)
Quarter: 2012Q4

REPORT INFORMATION
  Report Type: 
  Country: US (occurrence: US)
  Receive Date: 20121008
  Receipt Date: 20121008
  Transmission Date: 20130627
  Serious: No
  Sender: FDA-Public Use
  Company Number: US-PFIZER INC-2012246834

PATIENT
  Age: 70 Year
  Sex: Female
  Weight: 48.98 kg

DRUGS (7)
  1. ADVIL [Suspect]
     Indication: NECK PAIN
     Dosage: 400 mg (two of 200mg), 4x/day
     Route: 048
     Dates: start: 201203, end: 2012
  2. ADVIL [Suspect]
     Indication: HEADACHE
     Dosage: UNK
     Route: 048
     Dates: start: 2012, end: 201209
  3. ADVIL [Suspect]
     Indication: BACK PAIN
  4. ADVIL [Suspect]
     Indication: INFLAMMATION
  5. ADVIL PM [Suspect]
     Indication: SLEEP DISORDER
     Dosage: UNK, 1x/day
     Dates: start: 2012, end: 201209
  6. CALCIUM [Concomitant]
     Dosage: UNK, 1x/day
  7. PREMPRO [Concomitant]
     Dosage: UNK

REACTIONS (7)
  - Intentional overdose [Unknown]
  - Gastric disorder [Recovering/Resolving]
  - Vision blurred [Recovering/Resolving]
  - Balance disorder [Recovering/Resolving]
  - Feeling drunk [Recovering/Resolving]
  - Insomnia [Recovering/Resolving]
  - Diplopia [Recovering/Resolving]
